FAERS Safety Report 6385241-9 (Version None)
Quarter: 2009Q4

REPORT INFORMATION
  Report Type: 
  Country: None (occurrence: None)
  Receive Date: 20091002
  Receipt Date: 20080815
  Transmission Date: 20100525
  Serious: No
  Sender: FDA-Public Use
  Company Number: US-ASTRAZENECA-2008UW14108

PATIENT
  Age: 66 Year
  Sex: Female
  Weight: 105.7 kg

DRUGS (5)
  1. ARIMIDEX [Suspect]
     Indication: BREAST CANCER
     Dates: start: 20060101
  2. CEFTIN [Concomitant]
  3. POTASSIUM CHLORIDE [Concomitant]
  4. IRON [Concomitant]
  5. PULMICORT [Concomitant]

REACTIONS (2)
  - CELLULITIS [None]
  - LYMPHOEDEMA [None]
